FAERS Safety Report 20583520 (Version 2)
Quarter: 2022Q2

REPORT INFORMATION
  Report Type: Report from Study
  Country: US (occurrence: US)
  Receive Date: 20220311
  Receipt Date: 20220610
  Transmission Date: 20220721
  Serious: Yes (Other)
  Sender: FDA-Public Use
  Company Number: US-UCBSA-2022007380

PATIENT
  Age: 29 Year
  Sex: Male

DRUGS (3)
  1. LACOSAMIDE [Suspect]
     Active Substance: LACOSAMIDE
     Indication: Seizure
     Dosage: 250 MILLIGRAM, 2X/DAY (BID)
  2. LACOSAMIDE [Suspect]
     Active Substance: LACOSAMIDE
     Dosage: 300 MILLIGRAM, 2X/DAY (BID)
  3. BRIVIACT [Suspect]
     Active Substance: BRIVARACETAM
     Indication: Product used for unknown indication
     Dosage: 100 MILLIGRAM, 2X/DAY (BID)

REACTIONS (6)
  - Hospitalisation [Unknown]
  - Partial seizures [Not Recovered/Not Resolved]
  - Tinnitus [Not Recovered/Not Resolved]
  - Disturbance in attention [Not Recovered/Not Resolved]
  - Incorrect dose administered [Unknown]
  - Overdose [Unknown]

NARRATIVE: CASE EVENT DATE: 20210701
